FAERS Safety Report 5177243-5 (Version None)
Quarter: 2006Q4

REPORT INFORMATION
  Report Type: 
  Country: None (occurrence: None)
  Receive Date: 20061218
  Receipt Date: 20061207
  Transmission Date: 20070319
  Serious: No
  Sender: FDA-Public Use
  Company Number: IL-ELI_LILLY_AND_COMPANY-IL200612000989

PATIENT
  Age: 70 Year
  Sex: Female

DRUGS (5)
  1. CYMBALTA [Suspect]
     Indication: NEURALGIA
     Dosage: 60 MG, DAILY (1/D)
     Route: 048
     Dates: start: 20060801, end: 20061101
  2. NEURONTIN [Concomitant]
  3. CITALOPRAM HYDROBROMIDE [Concomitant]
  4. BACLOFEN [Concomitant]
  5. LORIVAN [Concomitant]

REACTIONS (1)
  - HEPATIC FUNCTION ABNORMAL [None]
